FAERS Safety Report 9711550 (Version 2)
Quarter: 2013Q4

REPORT INFORMATION
  Report Type: Spontaneous
  Country: US (occurrence: US)
  Receive Date: 20131126
  Receipt Date: 20131126
  Transmission Date: 20140711
  Serious: No
  Sender: FDA-Public Use
  Company Number: US-BRISTOL-MYERS SQUIBB COMPANY-19078732

PATIENT
  Age: 67 Year
  Sex: Male
  Weight: 102.04 kg

DRUGS (7)
  1. BYDUREON 2MG SUSPENSION [Suspect]
     Indication: TYPE 2 DIABETES MELLITUS
     Dosage: DURATION:4 WEEKS,NO OF INJECTIONS:4
     Route: 058
     Dates: start: 20130614
  2. METFORMIN [Concomitant]
  3. CRESTOR [Concomitant]
  4. AZILSARTAN MEDOXOMIL [Concomitant]
  5. LISINOPRIL [Concomitant]
  6. LUPRON [Concomitant]
  7. CASODEX [Concomitant]
     Dosage: FREQUENCY-MRNG

REACTIONS (5)
  - Nausea [Unknown]
  - Abdominal pain upper [Recovering/Resolving]
  - Decreased appetite [Unknown]
  - Back pain [Unknown]
  - Injection site swelling [Not Recovered/Not Resolved]
